FAERS Safety Report 4345076-5 (Version None)
Quarter: 2004Q2

REPORT INFORMATION
  Report Type: 
  Country: None (occurrence: None)
  Receive Date: 20040423
  Receipt Date: 20040415
  Transmission Date: 20050107
  Serious: Yes (Hospitalization)
  Sender: FDA-Public Use
  Company Number: US-JNJFOC-20040403733

PATIENT
  Age: 46 Year
  Sex: Female

DRUGS (4)
  1. DURAGESIC [Suspect]
     Route: 062
  2. VICODIN [Concomitant]
     Route: 049
  3. VICODIN [Concomitant]
     Indication: PAIN
     Dosage: (TWO 7.5 MG TABLETS)
     Route: 049
  4. DIOVAN [Concomitant]
     Indication: BLOOD PRESSURE
     Route: 049

REACTIONS (1)
  - DRUG INEFFECTIVE [None]
